FAERS Safety Report 9725991 (Version 3)
Quarter: 2014Q1

REPORT INFORMATION
  Report Type: Spontaneous
  Country: FR (occurrence: FR)
  Receive Date: 20131203
  Receipt Date: 20140116
  Transmission Date: 20141002
  Serious: Yes (Hospitalization)
  Sender: FDA-Public Use
  Company Number: FR-ASTRAZENECA-2013SE71575

PATIENT
  Age: 20 Year
  Sex: Female

DRUGS (14)
  1. INEXIUM [Suspect]
     Route: 048
     Dates: start: 20130625
  2. ACLOTINE [Suspect]
     Route: 042
     Dates: start: 20130703
  3. ACUPAN [Suspect]
     Indication: PAIN
     Route: 042
     Dates: start: 20130625
  4. BACTRIM FORTE [Suspect]
     Indication: ACUTE LYMPHOCYTIC LEUKAEMIA
     Route: 048
     Dates: start: 20130625, end: 20130718
  5. CERUBIDINE [Suspect]
     Indication: ACUTE LYMPHOCYTIC LEUKAEMIA
     Route: 042
     Dates: start: 20130701
  6. L ASPARAGINASE [Suspect]
     Indication: ACUTE LYMPHOCYTIC LEUKAEMIA
     Route: 042
     Dates: start: 20130701
  7. LUTERAN [Suspect]
     Route: 048
     Dates: start: 20130625
  8. PREDNISONE [Suspect]
     Indication: ACUTE LYMPHOCYTIC LEUKAEMIA
     Route: 048
     Dates: start: 20130624
  9. VINCRISTINE [Suspect]
     Indication: ACUTE LYMPHOCYTIC LEUKAEMIA
     Dosage: EVERY WEEK
     Route: 042
     Dates: start: 20130701
  10. VITAMINE K1 [Suspect]
     Route: 065
     Dates: start: 20130703
  11. ZELITREX [Suspect]
     Indication: INFECTION
     Route: 048
     Dates: start: 20130625
  12. ZOPHREN [Suspect]
     Indication: PROPHYLAXIS OF NAUSEA AND VOMITING
     Route: 065
     Dates: start: 20130701
  13. ENDOXAN [Suspect]
     Dosage: ONCE
     Route: 065
     Dates: start: 20130715
  14. UROMITEXAN [Suspect]
     Dosage: ONCE
     Route: 041
     Dates: start: 20130715

REACTIONS (2)
  - Cholestasis [Recovered/Resolved]
  - Hepatocellular injury [Recovered/Resolved]
